FAERS Safety Report 6491016-2 (Version None)
Quarter: 2009Q4

REPORT INFORMATION
  Report Type: 
  Country: None (occurrence: None)
  Receive Date: 20091211
  Receipt Date: 20091126
  Transmission Date: 20100525
  Serious: Yes (Other)
  Sender: FDA-Public Use
  Company Number: GR-GENENTECH-295585

PATIENT

DRUGS (3)
  1. RITUXIMAB [Suspect]
     Indication: AUTOIMMUNE DISORDER
     Dosage: 375 MG/M2, 1/WEEK
     Route: 042
  2. RITUXIMAB [Suspect]
     Dosage: 750 MG/M2, Q15D
     Route: 042
  3. METHYLPREDNISOLONE [Suspect]
     Indication: AUTOIMMUNE DISORDER
     Dosage: 100 MG, UNK
     Route: 042

REACTIONS (2)
  - EVANS SYNDROME [None]
  - SYSTEMIC LUPUS ERYTHEMATOSUS [None]
